FAERS Safety Report 7358508-5 (Version None)
Quarter: 2011Q1

REPORT INFORMATION
  Report Type: 
  Country: None (occurrence: None)
  Receive Date: 20110317
  Receipt Date: 20110308
  Transmission Date: 20110831
  Serious: Yes (Hospitalization)
  Sender: FDA-Public Use
  Company Number: JP-ASTRAZENECA-2011SE13205

PATIENT
  Age: 82 Year
  Sex: Male

DRUGS (2)
  1. PICIBANIL [Concomitant]
     Dosage: DOSE UNKNOWN
     Route: 065
  2. IRESSA [Suspect]
     Indication: LUNG NEOPLASM MALIGNANT
     Route: 048
     Dates: start: 20101013, end: 20110224

REACTIONS (1)
  - GASTROINTESTINAL HAEMORRHAGE [None]
